FAERS Safety Report 22324966 (Version 1)
Quarter: 2023Q2

REPORT INFORMATION
  Report Type: Spontaneous
  Country: US (occurrence: None)
  Receive Date: 20230514
  Receipt Date: 20230514
  Transmission Date: 20230722
  Serious: Yes (unspecified)
  Sender: FDA-Public Use
  Company Number: None

PATIENT
  Age: 58 Year
  Sex: Male
  Weight: 114.75 kg

DRUGS (23)
  1. QUETIAPINE [Suspect]
     Active Substance: QUETIAPINE
     Indication: Schizoaffective disorder
     Dosage: FREQUENCY : AT BEDTIME;?
     Route: 048
     Dates: start: 20200101, end: 20230101
  2. CYMBALTA [Suspect]
     Active Substance: DULOXETINE HYDROCHLORIDE
  3. DEVICE [Concomitant]
     Active Substance: DEVICE
  4. BACLOFEN [Concomitant]
     Active Substance: BACLOFEN
  5. CLOPIDOGREL [Concomitant]
     Active Substance: CLOPIDOGREL BISULFATE
  6. ALOGLIPTIN [Concomitant]
     Active Substance: ALOGLIPTIN
  7. IRON [Concomitant]
     Active Substance: IRON
  8. FEXOFENADINE [Concomitant]
     Active Substance: FEXOFENADINE HYDROCHLORIDE
  9. DIAZEPAM [Concomitant]
     Active Substance: DIAZEPAM
  10. GABAPENTIN [Concomitant]
     Active Substance: GABAPENTIN
  11. LITHIUM [Concomitant]
     Active Substance: LITHIUM
  12. PANTOPRAZOLE [Concomitant]
     Active Substance: PANTOPRAZOLE
  13. ACETAMINOPHEN [Concomitant]
     Active Substance: ACETAMINOPHEN
  14. cholecalcif [Concomitant]
  15. levothytoxine [Concomitant]
  16. EMPAGLIFLOZIN [Concomitant]
     Active Substance: EMPAGLIFLOZIN
  17. TAMSULOSIN [Concomitant]
     Active Substance: TAMSULOSIN
  18. ATORVASTATIN [Concomitant]
     Active Substance: ATORVASTATIN
  19. VITAMIN C [Concomitant]
     Active Substance: ASCORBIC ACID
  20. BENZTROPINE [Concomitant]
     Active Substance: BENZTROPINE
  21. mesylate [Concomitant]
  22. INSULIN NOS [Concomitant]
     Active Substance: INSULIN NOS
  23. INSULIN GLARGINE [Concomitant]
     Active Substance: INSULIN GLARGINE

REACTIONS (1)
  - Extrapyramidal disorder [None]

NARRATIVE: CASE EVENT DATE: 20230101
